FAERS Safety Report 7227984-0 (Version None)
Quarter: 2011Q1

REPORT INFORMATION
  Report Type: 
  Country: None (occurrence: None)
  Receive Date: 20110114
  Receipt Date: 20110112
  Transmission Date: 20110831
  Serious: Yes (Death, Hospitalization)
  Sender: FDA-Public Use
  Company Number: PHHO2010BR18881

PATIENT
  Sex: Male
  Weight: 53 kg

DRUGS (6)
  1. METHOTREXATE [Concomitant]
  2. AMN107 [Suspect]
     Dosage: 400 MG, BID
     Dates: start: 20101007, end: 20101011
  3. AMN107 [Suspect]
     Dosage: 400 MG, BID
     Route: 048
     Dates: start: 20101109
  4. DEXAMETHASONE [Concomitant]
     Dosage: UNK
  5. AMN107 [Suspect]
     Indication: ACUTE LYMPHOCYTIC LEUKAEMIA
     Dosage: 400 MG, BID
     Route: 048
     Dates: start: 20100129
  6. VINCRISTINE [Concomitant]
     Dosage: UNK

REACTIONS (3)
  - FEBRILE NEUTROPENIA [None]
  - SEPSIS [None]
  - SEPTIC SHOCK [None]
